FAERS Safety Report 20349696 (Version 1)
Quarter: 2022Q1

REPORT INFORMATION
  Report Type: Spontaneous
  Country: NL (occurrence: NL)
  Receive Date: 20220119
  Receipt Date: 20220119
  Transmission Date: 20220423
  Serious: Yes (Hospitalization)
  Sender: FDA-Public Use
  Company Number: None

PATIENT
  Sex: Female
  Weight: 95 kg

DRUGS (1)
  1. PREDNISOLONE [Suspect]
     Active Substance: PREDNISOLONE
     Indication: Product used for unknown indication
     Dosage: TAPER OVER A WEEK: 70 MG, 60 MG, 50 MG ETC.PREDNISOLON TABLET 5MG / BRAND NAME NOT SPECIFIED
     Route: 065
     Dates: start: 20201129, end: 20201206

REACTIONS (8)
  - Mania [Recovered/Resolved]
  - Disinhibition [Recovered/Resolved]
  - Abnormal behaviour [Recovered/Resolved]
  - Amnesia [Recovered/Resolved]
  - Insomnia [Recovered/Resolved]
  - Binge eating [Recovered/Resolved]
  - Insomnia [Recovered/Resolved]
  - Irregular sleep wake rhythm disorder [Recovered/Resolved]
